FAERS Safety Report 5465597-1 (Version None)
Quarter: 2007Q3

REPORT INFORMATION
  Report Type: 
  Country: None (occurrence: None)
  Receive Date: 20070924
  Receipt Date: 20070913
  Transmission Date: 20080115
  Serious: Yes (Life-Threatening, Hospitalization)
  Sender: FDA-Public Use
  Company Number: PL-AMGEN-UK241464

PATIENT
  Sex: Male

DRUGS (4)
  1. PANITUMUMAB [Suspect]
     Indication: COLORECTAL CANCER
     Dates: start: 20070620
  2. AUGMENTIN '125' [Concomitant]
     Route: 042
     Dates: start: 20070830, end: 20070905
  3. DIFLUCAN [Concomitant]
     Route: 042
     Dates: start: 20070830, end: 20070907
  4. BIAXIN [Concomitant]
     Route: 042
     Dates: start: 20070830, end: 20070905

REACTIONS (1)
  - PULMONARY EMBOLISM [None]
